FAERS Safety Report 16564836 (Version 1)
Quarter: 2019Q3

REPORT INFORMATION
  Report Type: Spontaneous
  Country: US (occurrence: US)
  Receive Date: 20190712
  Receipt Date: 20190712
  Transmission Date: 20191004
  Serious: Yes (Hospitalization)
  Sender: FDA-Public Use
  Company Number: US-ELI_LILLY_AND_COMPANY-US201907002215

PATIENT
  Sex: Female

DRUGS (2)
  1. HUMALOG [Suspect]
     Active Substance: INSULIN LISPRO
     Indication: TYPE 1 DIABETES MELLITUS
     Dosage: 30 U PLUS SLIDING SCALE, TID
     Route: 058
  2. LANTUS [Concomitant]
     Active Substance: INSULIN GLARGINE
     Indication: TYPE 1 DIABETES MELLITUS
     Dosage: 35 U, BID

REACTIONS (5)
  - Premature rupture of membranes [Recovered/Resolved]
  - Maternal exposure during pregnancy [Recovered/Resolved]
  - Premature labour [Recovered/Resolved]
  - Postoperative wound infection [Recovered/Resolved]
  - Blood glucose increased [Recovered/Resolved]
